FAERS Safety Report 8428597-5 (Version None)
Quarter: 2012Q2

REPORT INFORMATION
  Report Type: 
  Country: None (occurrence: None)
  Receive Date: 20120605
  Receipt Date: 20120521
  Transmission Date: 20120825
  Serious: Yes (Hospitalization, Other)
  Sender: FDA-Public Use
  Company Number: 2012P1030600

PATIENT
  Age: 68 Year
  Sex: Female
  Weight: 84 kg

DRUGS (23)
  1. ONDANSETRON [Suspect]
     Indication: MASTECTOMY
     Dosage: 4 MG
  2. ATORVASTATIN CALCIUM [Concomitant]
  3. SENNA-MINT WAF [Concomitant]
  4. DULOXETINE HYDROCHLORIDE [Suspect]
  5. CALCIUM TABS [Concomitant]
  6. SUCCINYLCHOLINE CHLORIDE [Concomitant]
  7. TIAGABINE HCL [Concomitant]
  8. MULTI-VITAMIN [Concomitant]
  9. FENTANYL CITRATE [Suspect]
     Indication: MASTECTOMY
     Dosage: 100 UG; 50 UG; 100 UG;
  10. LISINOPRIL [Concomitant]
  11. FLUODRICORTISONE [Concomitant]
  12. ALENDRONATE SODIUM [Concomitant]
  13. PROPOFOL [Concomitant]
  14. CLONAZEPAM [Concomitant]
  15. BUPROPION HCL [Suspect]
  16. GABAPENTIN [Concomitant]
  17. LEVOTHYROXINE SODIUM [Concomitant]
  18. MIDAZOLAM [Concomitant]
  19. PAROXETINE HCL [Suspect]
  20. OMEPRAZOLE [Concomitant]
  21. OXYCODONE HCL [Concomitant]
  22. TRIAMTERENE AND HYDROCHLOROTHIAZIDE [Concomitant]
  23. HYDROMORPHONE HCL [Concomitant]

REACTIONS (4)
  - CONFUSIONAL STATE [None]
  - UNRESPONSIVE TO STIMULI [None]
  - SEROTONIN SYNDROME [None]
  - APNOEA [None]
